FAERS Safety Report 19623039 (Version 1)
Quarter: 2021Q3

REPORT INFORMATION
  Report Type: Spontaneous
  Country: NG (occurrence: NG)
  Receive Date: 20210728
  Receipt Date: 20210728
  Transmission Date: 20211014
  Serious: Yes (Other)
  Sender: FDA-Public Use
  Company Number: NG-LUPIN PHARMACEUTICALS INC.-2019-09022

PATIENT
  Age: 25 Year
  Sex: Female

DRUGS (7)
  1. ARTEMISININ [Suspect]
     Active Substance: DIETARY SUPPLEMENT
     Indication: INVESTIGATION
     Dosage: UNK
     Route: 065
  2. CEFTRIAXONE. [Suspect]
     Active Substance: CEFTRIAXONE
     Indication: MALARIA
     Dosage: UNK
     Route: 065
  3. PARACETAMOL [Suspect]
     Active Substance: ACETAMINOPHEN
     Indication: INVESTIGATION
     Dosage: UNK
     Route: 065
  4. LUMEFANTRINE [Suspect]
     Active Substance: LUMEFANTRINE
     Indication: INVESTIGATION
     Dosage: UNK
     Route: 065
  5. RIBAVIRIN. [Suspect]
     Active Substance: RIBAVIRIN
     Indication: LASSA FEVER
     Dosage: 100 MILLIGRAM/KILOGRAM (LOADING DOSE ON DAY 0 (ADMINISTERED IN 2 DOSES; 2/3RD DOSE WAS ADMINISTERED
     Route: 042
  6. RIBAVIRIN. [Suspect]
     Active Substance: RIBAVIRIN
     Dosage: 25 MILLIGRAM/KILOGRAM, QD (AFTER 24H OF THE LOADING DOSE ON DAYS 1?4)
     Route: 042
  7. RIBAVIRIN. [Suspect]
     Active Substance: RIBAVIRIN
     Dosage: 12.5 MILLIGRAM/KILOGRAM, QD (ON DAYS 5?7)
     Route: 042

REACTIONS (3)
  - Maternal exposure during pregnancy [Unknown]
  - Postpartum haemorrhage [Unknown]
  - Premature labour [Unknown]
